FAERS Safety Report 18296113 (Version 1)
Quarter: 2020Q3

REPORT INFORMATION
  Report Type: Spontaneous
  Country: FR (occurrence: FR)
  Receive Date: 20200922
  Receipt Date: 20200922
  Transmission Date: 20201103
  Serious: Yes (Hospitalization)
  Sender: FDA-Public Use
  Company Number: FR-OTSUKA-2020_022804

PATIENT
  Age: 31 Year
  Sex: Male
  Weight: 100 kg

DRUGS (14)
  1. CLOPIXOL ACTION PROLONGEE [Suspect]
     Active Substance: ZUCLOPENTHIXOL ACETATE
     Indication: PSYCHOTIC DISORDER
     Dosage: UNK
     Route: 065
  2. CLOPIXOL ACTION PROLONGEE [Suspect]
     Active Substance: ZUCLOPENTHIXOL ACETATE
     Dosage: 200 MG (3 VIALS),  EVERY 3 WEEKS)
     Route: 065
  3. CLOPIXOL ACTION PROLONGEE [Suspect]
     Active Substance: ZUCLOPENTHIXOL ACETATE
     Dosage: 3 DF, UNK (IN 14 DAYS)
     Route: 065
  4. CLOPIXOL [Suspect]
     Active Substance: ZUCLOPENTHIXOL
     Indication: SCHIZOPHRENIA
     Dosage: UNK
     Route: 048
  5. SERESTA [Concomitant]
     Active Substance: OXAZEPAM
     Indication: ANXIOLYTIC THERAPY
     Dosage: UNK
     Route: 065
  6. ABILIFY MAINTENA [Suspect]
     Active Substance: ARIPIPRAZOLE
     Indication: PRODUCT USED FOR UNKNOWN INDICATION
     Dosage: UNK
     Route: 065
  7. CLOPIXOL ACTION PROLONGEE [Suspect]
     Active Substance: ZUCLOPENTHIXOL ACETATE
     Indication: PRODUCT USED FOR UNKNOWN INDICATION
     Dosage: 1 DF, EVERY 2 WEEKS
     Route: 030
  8. CLOPIXOL ACTION PROLONGEE [Suspect]
     Active Substance: ZUCLOPENTHIXOL ACETATE
     Dosage: 1 DF, (3 WEEKS)
     Route: 065
  9. CLOPIXOL ACTION PROLONGEE [Suspect]
     Active Substance: ZUCLOPENTHIXOL ACETATE
     Dosage: 1 DF (1.5 VIAL1), 15 DAYS
     Route: 065
  10. VALIUM [Concomitant]
     Active Substance: DIAZEPAM
     Indication: ANXIOLYTIC THERAPY
     Dosage: UNK
     Route: 065
  11. CANNABIS [Concomitant]
     Active Substance: CANNABIS SATIVA SUBSP. INDICA TOP
     Indication: PRODUCT USED FOR UNKNOWN INDICATION
     Dosage: UNK
     Route: 065
  12. TROPATEPINE HYDROCHLORIDE [Suspect]
     Active Substance: TROPATEPINE HYDROCHLORIDE
     Indication: ADVERSE EVENT
     Dosage: UNK
     Route: 065
  13. DIAZEPAM. [Concomitant]
     Active Substance: DIAZEPAM
     Indication: ANXIOLYTIC THERAPY
     Dosage: UNK
     Route: 065
  14. HALDOL [Concomitant]
     Active Substance: HALOPERIDOL
     Indication: PRODUCT USED FOR UNKNOWN INDICATION
     Dosage: UNK
     Route: 065

REACTIONS (15)
  - Excessive eye blinking [Not Recovered/Not Resolved]
  - Decreased interest [Unknown]
  - Muscle fatigue [Not Recovered/Not Resolved]
  - Weight increased [Not Recovered/Not Resolved]
  - Abnormal behaviour [Not Recovered/Not Resolved]
  - Asthenia [Unknown]
  - Tobacco user [Not Recovered/Not Resolved]
  - Depressed mood [Recovering/Resolving]
  - Patient elopement [Not Recovered/Not Resolved]
  - Dizziness [Not Recovered/Not Resolved]
  - Psychotic disorder [Not Recovered/Not Resolved]
  - Restless legs syndrome [Not Recovered/Not Resolved]
  - Eye pain [Not Recovered/Not Resolved]
  - Fatigue [Unknown]
  - Treatment noncompliance [Unknown]
